FAERS Safety Report 4421346-7 (Version None)
Quarter: 2004Q3

REPORT INFORMATION
  Report Type: 
  Country: None (occurrence: None)
  Receive Date: 20040804
  Receipt Date: 20040722
  Transmission Date: 20050211
  Serious: Yes (Life-Threatening, Hospitalization)
  Sender: FDA-Public Use
  Company Number: 2004033084

PATIENT
  Age: 45 Year
  Sex: Male
  Weight: 70 kg

DRUGS (3)
  1. ZITHROMAX [Suspect]
     Indication: UPPER RESPIRATORY TRACT INFLAMMATION
     Dosage: 500 MG (1 IN 1 D), ORAL
     Route: 048
     Dates: start: 20040401, end: 20040401
  2. ANTIINFLAMMATORY/ANTIRHEUMATIC NON-STEROIDS (ANTIINFLAMMATORY/ANTIRHEU [Suspect]
     Indication: ILL-DEFINED DISORDER
  3. TEPRENONE (TEPRENONE) [Concomitant]

REACTIONS (8)
  - CONVULSION [None]
  - ENCEPHALITIS [None]
  - GRAND MAL CONVULSION [None]
  - HYPERTROPHY [None]
  - MENINGEAL DISORDER [None]
  - MENINGITIS ASEPTIC [None]
  - NASOPHARYNGITIS [None]
  - VIRAL INFECTION [None]
